FAERS Safety Report 9904532 (Version 2)
Quarter: 2014Q1

REPORT INFORMATION
  Report Type: Spontaneous
  Country: US (occurrence: US)
  Receive Date: 20140218
  Receipt Date: 20140218
  Transmission Date: 20141002
  Serious: Yes (Other)
  Sender: FDA-Public Use
  Company Number: US-GE HEALTHCARE MEDICAL DIAGNOSTICS-OSCN-PR-0906S-0304

PATIENT
  Sex: Male

DRUGS (7)
  1. OMNISCAN [Suspect]
     Indication: PRODUCT USED FOR UNKNOWN INDICATION
     Route: 042
     Dates: start: 19990816, end: 19990816
  2. OMNISCAN [Suspect]
     Indication: TRANSPLANT EVALUATION
     Route: 042
     Dates: start: 20001013, end: 20001013
  3. OMNISCAN [Suspect]
     Route: 042
     Dates: start: 20020626, end: 20020626
  4. OMNISCAN [Suspect]
     Route: 042
     Dates: start: 20030710, end: 20030710
  5. OMNISCAN [Suspect]
     Route: 042
     Dates: start: 20040712, end: 20040712
  6. OMNISCAN [Suspect]
     Route: 042
     Dates: start: 20070111, end: 20070111
  7. MAGNEVIST [Suspect]
     Indication: PRODUCT USED FOR UNKNOWN INDICATION
     Route: 042
     Dates: start: 20060130, end: 20060130

REACTIONS (1)
  - Nephrogenic systemic fibrosis [Not Recovered/Not Resolved]
